FAERS Safety Report 16014145 (Version 4)
Quarter: 2019Q3

REPORT INFORMATION
  Report Type: Report from Study
  Country: US (occurrence: US)
  Receive Date: 20190227
  Receipt Date: 20190808
  Transmission Date: 20191004
  Serious: Yes (Hospitalization, Other)
  Sender: FDA-Public Use
  Company Number: US-VIFOR (INTERNATIONAL) INC.-VIT-2018-08647

PATIENT
  Age: 80 Year
  Sex: Female
  Weight: 48.12 kg

DRUGS (27)
  1. CARVEDILOL. [Concomitant]
     Active Substance: CARVEDILOL
  2. ISOSORB [Concomitant]
  3. PANTOPRAZOLE [Concomitant]
     Active Substance: PANTOPRAZOLE
  4. PROCRIT [Concomitant]
     Active Substance: ERYTHROPOIETIN
  5. PYRIDOXINE [Concomitant]
     Active Substance: PYRIDOXINE
  6. POTASSIUM CHLORIDE. [Concomitant]
     Active Substance: POTASSIUM CHLORIDE
  7. VELTASSA [Suspect]
     Active Substance: PATIROMER
     Route: 048
     Dates: start: 20160307
  8. HYDRALAZINE [Concomitant]
     Active Substance: HYDRALAZINE HYDROCHLORIDE
  9. VITAMIN B6 [Concomitant]
     Active Substance: PYRIDOXINE HYDROCHLORIDE
  10. FUROSEMIDE. [Concomitant]
     Active Substance: FUROSEMIDE
  11. BENICAR [Concomitant]
     Active Substance: OLMESARTAN MEDOXOMIL
  12. CLOPIDOGREL [Concomitant]
     Active Substance: CLOPIDOGREL BISULFATE
  13. IRON [Concomitant]
     Active Substance: IRON
  14. ALENDRONATE [Concomitant]
     Active Substance: ALENDRONATE SODIUM
  15. MAGNESIUM OXIDE. [Concomitant]
     Active Substance: MAGNESIUM OXIDE
  16. ELIQUIS [Concomitant]
     Active Substance: APIXABAN
  17. AMLODIPINE [Concomitant]
     Active Substance: AMLODIPINE BESYLATE
  18. ASPIRIN. [Concomitant]
     Active Substance: ASPIRIN
  19. VALSART/HCTZ [Concomitant]
  20. VITAMIN D [Concomitant]
     Active Substance: VITAMIN D NOS
  21. CLONIDINE. [Concomitant]
     Active Substance: CLONIDINE
  22. OLMESA MEDOX [Concomitant]
  23. VELTASSA [Suspect]
     Active Substance: PATIROMER
     Indication: HYPERKALAEMIA
     Route: 048
     Dates: start: 20160309
  24. VELTASSA [Suspect]
     Active Substance: PATIROMER
     Dates: start: 2018
  25. ATORVASTATIN [Concomitant]
     Active Substance: ATORVASTATIN
  26. HYDROCODONE BITARTRATE AND ACETAMINOPHEN [Concomitant]
     Active Substance: ACETAMINOPHEN\HYDROCODONE BITARTRATE
  27. NITROGLYCERIN. [Concomitant]
     Active Substance: NITROGLYCERIN

REACTIONS (5)
  - Angina pectoris [Recovered/Resolved]
  - Cardiac failure congestive [Not Recovered/Not Resolved]
  - Product dose omission [Not Recovered/Not Resolved]
  - Off label use [Unknown]
  - Heart rate decreased [Not Recovered/Not Resolved]

NARRATIVE: CASE EVENT DATE: 2018
